FAERS Safety Report 10437702 (Version 2)
Quarter: 2014Q3

REPORT INFORMATION
  Report Type: Spontaneous
  Country: US (occurrence: US)
  Receive Date: 20140908
  Receipt Date: 20140908
  Transmission Date: 20150326
  Serious: No
  Sender: FDA-Public Use
  Company Number: US-BRISTOL-MYERS SQUIBB COMPANY-19731942

PATIENT
  Age: 67 Year
  Sex: Female

DRUGS (1)
  1. ABILIFY [Suspect]
     Active Substance: ARIPIPRAZOLE
     Dosage: SPLITTING 2MG TABLETS AND TAKING 1 MG

REACTIONS (2)
  - Wrong technique in drug usage process [Unknown]
  - Tremor [Unknown]
